FAERS Safety Report 22044197 (Version 1)
Quarter: 2023Q1

REPORT INFORMATION
  Report Type: Spontaneous
  Country: US (occurrence: None)
  Receive Date: 20230223
  Receipt Date: 20230223
  Transmission Date: 20230417
  Serious: Yes (Disabling)
  Sender: FDA-Public Use
  Company Number: None

PATIENT
  Age: 61 Year
  Sex: Male
  Weight: 108 kg

DRUGS (5)
  1. EQUATE EYE DROPS DRY EYE RELIEF [Suspect]
     Active Substance: GLYCERIN\HYPROMELLOSES\POLYETHYLENE GLYCOL 400
     Indication: Dry eye
     Dosage: OTHER QUANTITY : 1 DROP(S);?FREQUENCY : AS NEEDED;?
     Route: 047
     Dates: start: 20230103, end: 20230201
  2. CGM [Concomitant]
  3. insulins [Concomitant]
  4. UNSPECIFIED INGREDIENT [Concomitant]
     Active Substance: UNSPECIFIED INGREDIENT
  5. VITAMIN D [Concomitant]
     Active Substance: VITAMIN D NOS

REACTIONS (6)
  - Sensation of foreign body [None]
  - Eye pain [None]
  - Ocular hyperaemia [None]
  - Drug ineffective [None]
  - Ocular discomfort [None]
  - Eye discharge [None]

NARRATIVE: CASE EVENT DATE: 20230128
